FAERS Safety Report 7003718-X (Version None)
Quarter: 2010Q3

REPORT INFORMATION
  Report Type: 
  Country: None (occurrence: None)
  Receive Date: 20100920
  Receipt Date: 20090831
  Transmission Date: 20110219
  Serious: Yes (Life-Threatening, Hospitalization)
  Sender: FDA-Public Use
  Company Number: US-WYE-H10771709

PATIENT
  Sex: Female

DRUGS (1)
  1. PANTOPRAZOLE [Suspect]
     Indication: GASTROOESOPHAGEAL REFLUX DISEASE
     Route: 048

REACTIONS (2)
  - ANAPHYLACTIC REACTION [None]
  - DRUG HYPERSENSITIVITY [None]
